FAERS Safety Report 5529339-3 (Version None)
Quarter: 2007Q4

REPORT INFORMATION
  Report Type: 
  Country: None (occurrence: None)
  Receive Date: 20071129
  Receipt Date: 20071127
  Transmission Date: 20080405
  Serious: Yes (Hospitalization, Other)
  Sender: FDA-Public Use
  Company Number: B0497154A

PATIENT
  Age: 2 Month
  Sex: Female

DRUGS (4)
  1. GAVISCON [Suspect]
     Route: 048
     Dates: end: 20060101
  2. RANITIDINE HCL [Suspect]
     Dates: end: 20060101
  3. DIMETICONE [Suspect]
  4. TILACTASE [Suspect]

REACTIONS (1)
  - CONSTIPATION [None]
